FAERS Safety Report 10394674 (Version 1)
Quarter: 2014Q3

REPORT INFORMATION
  Report Type: Spontaneous
  Country: IE (occurrence: IE)
  Receive Date: 20140820
  Receipt Date: 20140820
  Transmission Date: 20150326
  Serious: Yes (Death)
  Sender: FDA-Public Use
  Company Number: IE-AMGEN-IRLSP2014062495

PATIENT
  Age: 91 Year
  Sex: Male

DRUGS (14)
  1. CRESTOR [Concomitant]
     Active Substance: ROSUVASTATIN CALCIUM
  2. CALCICHEW [Concomitant]
     Active Substance: CALCIUM CARBONATE
  3. PURINOL                            /00003301/ [Concomitant]
  4. NSA [Concomitant]
     Active Substance: UNSPECIFIED INGREDIENT
  5. IXPRIM [Concomitant]
     Active Substance: ACETAMINOPHEN\TRAMADOL HYDROCHLORIDE
  6. IMDUR [Concomitant]
     Active Substance: ISOSORBIDE MONONITRATE
  7. CARDICOR [Concomitant]
     Active Substance: BISOPROLOL
  8. ZANIDIP [Concomitant]
     Active Substance: LERCANIDIPINE HYDROCHLORIDE
  9. PROTIUM                            /01263204/ [Concomitant]
  10. ARANESP [Suspect]
     Active Substance: DARBEPOETIN ALFA
     Indication: RENAL FAILURE CHRONIC
     Dosage: 30 MUG, Q2WK
     Route: 058
     Dates: start: 20120730
  11. GALFER [Concomitant]
     Active Substance: IRON
  12. MICARDIS [Concomitant]
     Active Substance: TELMISARTAN
  13. CARDURA [Concomitant]
     Active Substance: DOXAZOSIN MESYLATE
  14. FRUSEMIDE                          /00032601/ [Concomitant]
     Active Substance: FUROSEMIDE

REACTIONS (1)
  - Death [Fatal]
